FAERS Safety Report 8077594-0 (Version None)
Quarter: 2012Q1

REPORT INFORMATION
  Report Type: 
  Country: None (occurrence: None)
  Receive Date: 20120127
  Receipt Date: 20120123
  Transmission Date: 20120608
  Serious: Yes (Other)
  Sender: FDA-Public Use
  Company Number: US-PFIZER INC-2012018908

PATIENT
  Sex: Female
  Weight: 58.957 kg

DRUGS (4)
  1. XANAX [Concomitant]
     Indication: DEPRESSION
  2. XANAX [Concomitant]
     Indication: ANXIETY
     Dosage: 0.25 MG, DAILY
     Route: 048
     Dates: end: 20110101
  3. PRISTIQ [Suspect]
     Indication: DEPRESSION
     Dosage: 50 MG, DAILY
     Route: 048
     Dates: start: 20110819, end: 20111001
  4. PRISTIQ [Interacting]
     Dosage: 50 MG, DAILY
     Route: 048
     Dates: start: 20120101, end: 20120119

REACTIONS (7)
  - EXPIRED DRUG ADMINISTERED [None]
  - DRUG INTERACTION [None]
  - DERMATITIS [None]
  - ALLERGY TO CHEMICALS [None]
  - NAUSEA [None]
  - DERMATITIS CONTACT [None]
  - DRY MOUTH [None]
